FAERS Safety Report 22671322 (Version 2)
Quarter: 2023Q4

REPORT INFORMATION
  Report Type: Report from Study
  Country: US (occurrence: US)
  Receive Date: 20230705
  Receipt Date: 20231004
  Transmission Date: 20240109
  Serious: Yes (Other)
  Sender: FDA-Public Use
  Company Number: US-ABBVIE-5290962

PATIENT
  Age: 23 Year
  Sex: Female

DRUGS (4)
  1. HUMIRA [Suspect]
     Active Substance: ADALIMUMAB
     Indication: Colitis ulcerative
     Dosage: FORM STRENGTH: 40 MILLIGRAM, CITRATE FREE
     Route: 058
     Dates: end: 20230424
  2. HUMIRA [Suspect]
     Active Substance: ADALIMUMAB
     Dosage: FORM STRENGTH: 40 MILLIGRAM, CITRATE FREE
     Route: 058
     Dates: start: 20220612
  3. HUMIRA [Suspect]
     Active Substance: ADALIMUMAB
     Dosage: LAST ADMIN DATE: 2022, FORM STRENGTH: 40 MILLIGRAM, CITRATE FREE
     Route: 058
     Dates: start: 20220531
  4. HUMIRA [Suspect]
     Active Substance: ADALIMUMAB
     Dosage: FORM STRENGTH: 40 MILLIGRAM, FIRST ADMIN DATE:2023, CITRATE FREE
     Route: 058

REACTIONS (2)
  - Abortion spontaneous [Recovered/Resolved]
  - Maternal exposure during pregnancy [Unknown]

NARRATIVE: CASE EVENT DATE: 20230515
